FAERS Safety Report 17165752 (Version 1)
Quarter: 2019Q4

REPORT INFORMATION
  Report Type: Other
  Country: FR (occurrence: FR)
  Receive Date: 20191217
  Receipt Date: 20191217
  Transmission Date: 20200122
  Serious: Yes (Hospitalization, Other)
  Sender: FDA-Public Use
  Company Number: FR-DENTSPLY-2019SCDP000670

PATIENT
  Age: 69 Year
  Sex: Male
  Weight: 79 kg

DRUGS (1)
  1. CARBOCAIN DENTAL [Suspect]
     Active Substance: MEPIVACAINE HYDROCHLORIDE
     Indication: CATARACT
     Dosage: 6 MILLILITER
     Route: 047
     Dates: start: 20191106, end: 20191106

REACTIONS (2)
  - Epilepsy [Recovered/Resolved]
  - Myoclonus [Recovered/Resolved]

NARRATIVE: CASE EVENT DATE: 20191106
